FAERS Safety Report 9868737 (Version 1)
Quarter: 2014Q1

REPORT INFORMATION
  Report Type: Report from Study
  Country: DE (occurrence: DE)
  Receive Date: 20140204
  Receipt Date: 20140204
  Transmission Date: 20141002
  Serious: Yes (Hospitalization)
  Sender: FDA-Public Use
  Company Number: DE-UCBSA-110891

PATIENT
  Age: 83 Year
  Sex: Female
  Weight: 60 kg

DRUGS (11)
  1. NEUPRO [Suspect]
     Indication: RESTLESS LEGS SYNDROME
     Route: 062
  2. ZOPICLON [Concomitant]
     Indication: SLEEP DISORDER
     Route: 048
  3. TIMOMANN [Concomitant]
     Indication: GLAUCOMA
     Dosage: EXTERNAL/EYE
  4. AMLOPIDINE [Concomitant]
     Indication: HYPERTENSION
     Dosage: ONCE DAILY
     Route: 048
  5. CANDESARTAN [Concomitant]
     Indication: HYPERTENSION
     Route: 048
  6. TORASEMID [Concomitant]
     Indication: HYPERTENSION
     Dosage: ONCE DAILY
     Route: 048
  7. SIFROL [Concomitant]
     Indication: RESTLESS LEGS SYNDROME
     Route: 048
  8. ASS [Concomitant]
     Indication: ANTIPLATELET THERAPY
     Route: 048
  9. CLOPIDOGREL [Concomitant]
     Indication: ANTIPLATELET THERAPY
     Route: 048
  10. MADOPAR [Concomitant]
     Indication: RESTLESS LEGS SYNDROME
     Route: 048
  11. LEVODOPA [Concomitant]
     Indication: RESTLESS LEGS SYNDROME
     Dosage: 100/25MG ONCE DAILY
     Route: 048

REACTIONS (1)
  - Cerebrovascular accident [Unknown]
